FAERS Safety Report 21668354 (Version 2)
Quarter: 2022Q4

REPORT INFORMATION
  Report Type: Spontaneous
  Country: PT (occurrence: PT)
  Receive Date: 20221201
  Receipt Date: 20221220
  Transmission Date: 20230113
  Serious: Yes (Other)
  Sender: FDA-Public Use
  Company Number: PT-ARBOR PHARMACEUTICALS, LLC-PT-2022ARB002886

PATIENT
  Age: 59 Year
  Sex: Male

DRUGS (1)
  1. AZILSARTAN KAMEDOXOMIL\CHLORTHALIDONE [Suspect]
     Active Substance: AZILSARTAN KAMEDOXOMIL\CHLORTHALIDONE
     Indication: Hypertension
     Dosage: UNK
     Route: 048
     Dates: start: 20210820

REACTIONS (1)
  - Psoriasis [Recovered/Resolved]

NARRATIVE: CASE EVENT DATE: 20210901
